FAERS Safety Report 24399402 (Version 2)
Quarter: 2024Q4

REPORT INFORMATION
  Report Type: Report from Study
  Country: BE (occurrence: BE)
  Receive Date: 20241004
  Receipt Date: 20241009
  Transmission Date: 20250115
  Serious: No
  Sender: ABBVIE
  Company Number: BE-ABBVIE-5948886

PATIENT
  Sex: Male
  Weight: 75 kg

DRUGS (14)
  1. CARBIDOPA\LEVODOPA [Suspect]
     Active Substance: CARBIDOPA\LEVODOPA
     Indication: Parkinson^s disease
     Dosage: MD: 9.0 ML, CD: 3.8 ML/HR. ED: 3.0 ML; REMAINS AT 16 HOURS
     Route: 050
     Dates: start: 20231109, end: 20231116
  2. CARBIDOPA\LEVODOPA [Suspect]
     Active Substance: CARBIDOPA\LEVODOPA
     Dosage: LAST ADMIN DATE: SEP 2023
     Route: 050
     Dates: start: 20230904
  3. CARBIDOPA\LEVODOPA [Suspect]
     Active Substance: CARBIDOPA\LEVODOPA
     Dosage: MD: 9.0 ML, CD: 3.9 ML/HR. ED: 3.0 ML; REMAINS AT 16 HOURS
     Route: 050
     Dates: start: 20231116
  4. CARBIDOPA\LEVODOPA [Suspect]
     Active Substance: CARBIDOPA\LEVODOPA
     Dosage: MD: 9.0 ML, CD: 3.5 ML/HR. ED: 3.0 ML; REMAINS AT 16 HOURS
     Route: 050
     Dates: start: 20230906, end: 20230927
  5. CARBIDOPA\LEVODOPA [Suspect]
     Active Substance: CARBIDOPA\LEVODOPA
     Dosage: MD: 9.0 ML, CD: 3.7 ML/HR. ED: 3.0 ML; REMAINS AT 16 HOURS
     Route: 050
     Dates: start: 20230927, end: 20231109
  6. XARELTO [Concomitant]
     Active Substance: RIVAROXABAN
     Indication: Anticoagulant therapy
     Dosage: FREQUENCY TEXT: AT 08:00 HOURS
  7. BENSERAZIDE\LEVODOPA [Concomitant]
     Active Substance: BENSERAZIDE\LEVODOPA
     Indication: Parkinson^s disease
     Dosage: FREQUENCY TEXT: WHEN GOING TO BED?FORM STRENGTH UNITS:125  MILLIGRAM
     Route: 048
  8. STALEVO [Concomitant]
     Active Substance: CARBIDOPA\ENTACAPONE\LEVODOPA
     Indication: Parkinson^s disease
  9. STALEVO [Concomitant]
     Active Substance: CARBIDOPA\ENTACAPONE\LEVODOPA
     Indication: Parkinson^s disease
     Route: 048
  10. ZOCOR [Concomitant]
     Active Substance: SIMVASTATIN
     Indication: Blood cholesterol abnormal
     Dosage: FREQUENCY TEXT: AT 20:00 HOURS
     Route: 048
  11. BISOPROLOL [Concomitant]
     Active Substance: BISOPROLOL\BISOPROLOL FUMARATE
     Indication: Cardiac disorder
     Dosage: FREQUENCY TEXT: AT 08:00 HOURS
  12. AZILECT [Concomitant]
     Active Substance: RASAGILINE MESYLATE
     Indication: Parkinson^s disease
     Dosage: FREQUENCY TEXT: AT 08:00 HOURS?FORM STRENGTH UNITS: 1 MILLIGRAM
     Route: 048
  13. Apocard Retard [Concomitant]
     Indication: Cardiac disorder
     Dosage: FREQUENCY TEXT: AT 08:00 HOURS
     Route: 048
  14. BENSERAZIDE\LEVODOPA [Concomitant]
     Active Substance: BENSERAZIDE\LEVODOPA
     Indication: Parkinson^s disease
     Dosage: DISPERSIBLE, FORM STRENGTH UNITS: 125 MILLIGRAM, FREQUENCY TEXT: 1 HOUR AFTER MORNING DOSE/AT 8 AM
     Route: 048

REACTIONS (1)
  - Freezing phenomenon [Unknown]
